FAERS Safety Report 4817066-7 (Version None)
Quarter: 2005Q3

REPORT INFORMATION
  Report Type: 
  Country: None (occurrence: None)
  Receive Date: 20050929
  Receipt Date: 20050615
  Transmission Date: 20060218
  Serious: No
  Sender: FDA-Public Use
  Company Number: 05P-163-0303313-00

PATIENT
  Age: 49 Year
  Sex: Male
  Weight: 77.1115 kg

DRUGS (11)
  1. HUMIRA [Suspect]
     Indication: RHEUMATOID ARTHRITIS
     Dosage: 40 MG, 1 IN 2 WK, SUBCUTANEOUS
     Route: 058
     Dates: start: 20040501
  2. LEFLUNOMIDE [Concomitant]
  3. ATORVASTATIN CALCIUM [Concomitant]
  4. TRAMADOL HYDROCHLORIDE [Concomitant]
  5. ATENOLOL [Concomitant]
  6. ALENDRONATE SODIUM [Concomitant]
  7. VITAMINS [Concomitant]
  8. CALCIUM CARBONATE [Concomitant]
  9. DICYCLOMINE HCL [Concomitant]
  10. CELECOXIB [Concomitant]
  11. RANITIDINE HYDROCHLORIDE [Concomitant]

REACTIONS (1)
  - STAPHYLOCOCCAL INFECTION [None]
